FAERS Safety Report 9076865 (Version 1)
Quarter: 2013Q1

REPORT INFORMATION
  Report Type: Report from Study
  Country: US (occurrence: US)
  Receive Date: 20130129
  Receipt Date: 20130129
  Transmission Date: 20140127
  Serious: No
  Sender: FDA-Public Use
  Company Number: US-ABBOTT-12P-163-0917237-00

PATIENT
  Age: 64 Year
  Sex: Female

DRUGS (11)
  1. HUMIRA 40 MG/0.8 ML PEN [Suspect]
     Indication: PSORIASIS
     Dates: start: 20120131
  2. HUMALOG [Concomitant]
     Indication: DIABETES MELLITUS
     Dosage: AC
  3. HUMALOG [Concomitant]
     Dosage: BEFORE MEALS
  4. LANTUS [Concomitant]
     Indication: DIABETES MELLITUS
     Dosage: AT BEDTIME
  5. LANTUS [Concomitant]
  6. CRESTOR [Concomitant]
     Indication: BLOOD CHOLESTEROL INCREASED
  7. BENICAR [Concomitant]
     Indication: BLOOD PRESSURE
  8. METOPROLOL [Concomitant]
     Indication: BLOOD PRESSURE
  9. METOPROLOL [Concomitant]
  10. VITAMIN D [Concomitant]
     Indication: SUPPLEMENTATION THERAPY
     Dosage: DAILY
  11. VITAMIN A [Concomitant]
     Indication: VITAMIN SUPPLEMENTATION

REACTIONS (4)
  - Fatigue [Not Recovered/Not Resolved]
  - Skin plaque [Recovering/Resolving]
  - Injection site erythema [Not Recovered/Not Resolved]
  - Injection site haemorrhage [Recovered/Resolved]
